FAERS Safety Report 21187789 (Version 1)
Quarter: 2022Q3

REPORT INFORMATION
  Report Type: Spontaneous
  Country: US (occurrence: None)
  Receive Date: 20220809
  Receipt Date: 20220809
  Transmission Date: 20221026
  Serious: No
  Sender: FDA-Public Use
  Company Number: US-ROCHE-3032171

PATIENT
  Age: 1 Year
  Sex: Male
  Weight: 8.62 kg

DRUGS (6)
  1. EVRYSDI [Suspect]
     Active Substance: RISDIPLAM
     Indication: Spinal muscular atrophy
     Dosage: 1.7 MG = 2.3 ML DAILY BY G-TUBE ;ONGOING: YES
     Route: 048
     Dates: start: 20220210
  2. EVRYSDI [Suspect]
     Active Substance: RISDIPLAM
  3. EVRYSDI [Suspect]
     Active Substance: RISDIPLAM
  4. EVRYSDI [Suspect]
     Active Substance: RISDIPLAM
  5. ALBUTEROL SULFATE [Concomitant]
     Active Substance: ALBUTEROL SULFATE
     Dosage: 2.5 MG/2 ML 0.083%- 1 VIAL INHALATION EVERY 4 HOURS AS NEEDED.
  6. CAYSTON [Concomitant]
     Active Substance: AZTREONAM
     Dosage: 1 VAIL AEROSOLIZED 3 TIMES DAILY

REACTIONS (2)
  - Pyrexia [Recovered/Resolved]
  - Off label use [Unknown]

NARRATIVE: CASE EVENT DATE: 20220216
